FAERS Safety Report 23719111 (Version 1)
Quarter: 2024Q2

REPORT INFORMATION
  Report Type: Spontaneous
  Country: US (occurrence: US)
  Receive Date: 20240408
  Receipt Date: 20240408
  Transmission Date: 20240716
  Serious: Yes (Other)
  Sender: FDA-Public Use
  Company Number: US-002147023-NVSC2024US073254

PATIENT
  Age: 51 Year

DRUGS (1)
  1. KESIMPTA [Suspect]
     Active Substance: OFATUMUMAB
     Indication: Relapsing-remitting multiple sclerosis
     Dosage: UNK
     Route: 065

REACTIONS (6)
  - Visual cortex atrophy [Unknown]
  - Visual impairment [Unknown]
  - Vitreous floaters [Unknown]
  - Glare [Unknown]
  - Anxiety [Unknown]
  - Depression [Unknown]
